FAERS Safety Report 13896922 (Version 1)
Quarter: 2017Q3

REPORT INFORMATION
  Report Type: Spontaneous
  Country: FR (occurrence: FR)
  Receive Date: 20170823
  Receipt Date: 20170823
  Transmission Date: 20171127
  Serious: Yes (Hospitalization)
  Sender: FDA-Public Use
  Company Number: FR-PFIZER INC-2017357781

PATIENT
  Age: 54 Year
  Sex: Male

DRUGS (13)
  1. BACTRIM [Suspect]
     Active Substance: SULFAMETHOXAZOLE\TRIMETHOPRIM
     Indication: PLASMA CELL MYELOMA
     Dosage: UNK
     Dates: start: 201602
  2. VALACICLOVIR [Concomitant]
     Active Substance: VALACYCLOVIR HYDROCHLORIDE
     Indication: PLASMA CELL MYELOMA
  3. LEDERFOLINE [Suspect]
     Active Substance: LEUCOVORIN CALCIUM
     Indication: PLASMA CELL MYELOMA
     Dosage: UNK
     Route: 048
     Dates: start: 201602
  4. ORACILLINE [Suspect]
     Active Substance: PENICILLIN V
     Indication: PLASMA CELL MYELOMA
     Route: 048
  5. VELCADE [Concomitant]
     Active Substance: BORTEZOMIB
     Dosage: UNK, SINGLE
     Dates: start: 20160215
  6. ZYLORIC [Suspect]
     Active Substance: ALLOPURINOL
     Dosage: UNK
     Route: 048
     Dates: start: 201602
  7. THALIDOMIDE [Concomitant]
     Active Substance: THALIDOMIDE
     Indication: PLASMA CELL MYELOMA
  8. VELCADE [Concomitant]
     Active Substance: BORTEZOMIB
     Dosage: UNK UNK, SINGLE
     Dates: start: 20160211
  9. VELCADE [Concomitant]
     Active Substance: BORTEZOMIB
     Dosage: UNK, SINGLE
     Dates: start: 20160218
  10. VELCADE [Concomitant]
     Active Substance: BORTEZOMIB
     Dosage: UNK, SINGLE
     Dates: start: 20160222
  11. TRIFLUCAN [Suspect]
     Active Substance: FLUCONAZOLE
     Indication: PLASMA CELL MYELOMA
     Route: 048
  12. DEXAMETHASONE. [Concomitant]
     Active Substance: DEXAMETHASONE
     Indication: PLASMA CELL MYELOMA
  13. EUPANTOL [Concomitant]
     Active Substance: PANTOPRAZOLE SODIUM
     Indication: PLASMA CELL MYELOMA

REACTIONS (1)
  - Drug reaction with eosinophilia and systemic symptoms [Recovered/Resolved]

NARRATIVE: CASE EVENT DATE: 201603
